FAERS Safety Report 6214097-X (Version None)
Quarter: 2009Q2

REPORT INFORMATION
  Report Type: 
  Country: None (occurrence: None)
  Receive Date: 20090604
  Receipt Date: 20090527
  Transmission Date: 20091009
  Serious: Yes (Hospitalization)
  Sender: FDA-Public Use
  Company Number: US-ROCHE-635149

PATIENT
  Sex: Female
  Weight: 59 kg

DRUGS (2)
  1. VALGANCICLOVIR HCL [Suspect]
     Indication: TRANSPLANT REJECTION
     Route: 065
     Dates: start: 20090201
  2. VANCOMYCIN HCL [Concomitant]
     Dosage: INDICATION REPORTED: ANTIBIOTIC

REACTIONS (1)
  - PANCREATITIS [None]
